FAERS Safety Report 18141125 (Version 1)
Quarter: 2020Q3

REPORT INFORMATION
  Report Type: Spontaneous
  Country: US (occurrence: US)
  Receive Date: 20200812
  Receipt Date: 20200812
  Transmission Date: 20201103
  Serious: No
  Sender: FDA-Public Use
  Company Number: US-OTSUKA-2020_010843

PATIENT
  Age: 16 Year
  Sex: Female

DRUGS (3)
  1. REXULTI [Suspect]
     Active Substance: BREXPIPRAZOLE
     Indication: DEPRESSION
  2. REXULTI [Suspect]
     Active Substance: BREXPIPRAZOLE
     Indication: ANXIETY
  3. REXULTI [Suspect]
     Active Substance: BREXPIPRAZOLE
     Indication: SUICIDAL IDEATION
     Dosage: 2 MG, QD
     Route: 065
     Dates: start: 201912

REACTIONS (2)
  - Product use in unapproved indication [Unknown]
  - Product administered to patient of inappropriate age [Unknown]

NARRATIVE: CASE EVENT DATE: 201912
